FAERS Safety Report 15042394 (Version 1)
Quarter: 2018Q2

REPORT INFORMATION
  Report Type: Spontaneous
  Country: NZ (occurrence: NZ)
  Receive Date: 20180621
  Receipt Date: 20180621
  Transmission Date: 20180711
  Serious: Yes (Other)
  Sender: FDA-Public Use
  Company Number: PHHY2018NZ023735

PATIENT
  Age: 39 Year
  Sex: Female

DRUGS (1)
  1. CARBAMAZEPINE. [Suspect]
     Active Substance: CARBAMAZEPINE
     Indication: PRODUCT USED FOR UNKNOWN INDICATION
     Dosage: UNK
     Route: 065

REACTIONS (5)
  - Eosinophil count increased [Unknown]
  - Drug reaction with eosinophilia and systemic symptoms [Unknown]
  - Liver function test abnormal [Unknown]
  - Dermatitis acneiform [Unknown]
  - Pyrexia [Unknown]
